FAERS Safety Report 9288214 (Version 3)
Quarter: 2013Q3

REPORT INFORMATION
  Report Type: Spontaneous
  Country: US (occurrence: US)
  Receive Date: 20130514
  Receipt Date: 20130708
  Transmission Date: 20140515
  Serious: Yes (Other)
  Sender: FDA-Public Use
  Company Number: US-SANOFI-AVENTIS-2013SA047462

PATIENT
  Sex: Female
  Weight: 72.57 kg

DRUGS (18)
  1. DEMEROL [Suspect]
     Indication: ENDOSCOPY
     Dates: end: 1991
  2. LYRICA [Suspect]
     Indication: NEURALGIA
     Dates: start: 2010, end: 201107
  3. LYRICA [Suspect]
     Indication: FIBROMYALGIA
     Dates: start: 2010, end: 201107
  4. LYRICA [Suspect]
     Indication: NEURALGIA
  5. LYRICA [Suspect]
     Indication: FIBROMYALGIA
  6. TOPAMAX [Suspect]
     Dates: start: 2012, end: 2012
  7. CYMBALTA [Suspect]
     Indication: PAIN
     Dates: start: 2012
  8. TEGRETOL [Suspect]
  9. REQUIP [Concomitant]
     Indication: RESTLESS LEGS SYNDROME
  10. KEPPRA [Concomitant]
  11. SYNTHROID [Concomitant]
     Indication: SURGERY
  12. LISINOPRIL [Concomitant]
  13. PREVACID [Concomitant]
     Indication: GASTROOESOPHAGEAL REFLUX DISEASE
  14. LIPITOR [Concomitant]
  15. PREMARIN [Concomitant]
  16. LOMOTIL [Concomitant]
  17. ADVAIR [Concomitant]
  18. FLEXERIL [Concomitant]

REACTIONS (8)
  - Cellulitis [Recovered/Resolved]
  - Drug hypersensitivity [Unknown]
  - Exposure during pregnancy [Unknown]
  - Drug ineffective [Unknown]
  - Tooth disorder [Unknown]
  - Malaise [Unknown]
  - Burning sensation [Unknown]
  - Nausea [Unknown]
